FAERS Safety Report 8014514 (Version 12)
Quarter: 2013Q1

REPORT INFORMATION
  Report Type: Report from Study
  Country: US (occurrence: US)
  Receive Date: 20110629
  Receipt Date: 20130125
  Transmission Date: 20140127
  Serious: Yes (Death, Hospitalization, Other)
  Sender: FDA-Public Use
  Company Number: US-BRISTOL-MYERS SQUIBB COMPANY-15682958

PATIENT
  Age: 65 Year
  Sex: Male
  Weight: 50.3 kg

DRUGS (4)
  1. IPILIMUMAB [Suspect]
     Indication: MALIGNANT MELANOMA
     Dosage: LAST DOSE ON 12MAY11
     Route: 042
     Dates: start: 20110308
  2. CEFEPIME HCL [Concomitant]
     Dosage: ALSO 09JUL11.
     Dates: start: 20110428, end: 20110709
  3. VANCOMYCIN [Concomitant]
     Dosage: ALSO 09JUL11.?INJ
     Dates: start: 20110428, end: 20110709
  4. ACETAMINOPHEN [Concomitant]
     Dates: start: 20110709, end: 20110709

REACTIONS (8)
  - Malignant neoplasm progression [Fatal]
  - Sepsis [Not Recovered/Not Resolved]
  - Pyrexia [Not Recovered/Not Resolved]
  - Oedema [Not Recovered/Not Resolved]
  - Urinary tract infection [Recovered/Resolved]
  - Anaemia [Recovered/Resolved]
  - Tachycardia [Recovered/Resolved]
  - Decreased appetite [Not Recovered/Not Resolved]
